FAERS Safety Report 4443504-8 (Version None)
Quarter: 2004Q3

REPORT INFORMATION
  Report Type: 
  Country: None (occurrence: None)
  Receive Date: 20040901
  Receipt Date: 20040816
  Transmission Date: 20050211
  Serious: No
  Sender: FDA-Public Use
  Company Number: DSA_80706_2004

PATIENT
  Age: 53 Year
  Sex: Female
  Weight: 81.6475 kg

DRUGS (12)
  1. XYREM [Suspect]
     Indication: FIBROMYALGIA
     Dosage: 9 G NIGHTLY PO
     Route: 048
  2. XYREM [Suspect]
     Indication: INSOMNIA
     Dosage: 9 G NIGHTLY PO
     Route: 048
  3. XYREM [Suspect]
     Indication: FIBROMYALGIA
     Dosage: 16 TWICE NIGHTLY PO
     Route: 048
     Dates: end: 20040701
  4. XYREM [Suspect]
     Indication: INSOMNIA
     Dosage: 16 TWICE NIGHTLY PO
     Route: 048
     Dates: end: 20040701
  5. SERZONE [Suspect]
     Dosage: 300 MG QHS PO
     Route: 048
  6. XANAX [Concomitant]
  7. ACIPHEX [Concomitant]
  8. TOPAMAX [Concomitant]
  9. LEXAPRO [Concomitant]
  10. PROVIGIL [Concomitant]
  11. HYDROCHLOROTHIAZIDE [Concomitant]
  12. IMITREX    CERENEX [Concomitant]

REACTIONS (6)
  - ANXIETY [None]
  - DRUG TOXICITY [None]
  - INSOMNIA [None]
  - MIGRAINE [None]
  - NAUSEA [None]
  - PAIN [None]
